FAERS Safety Report 10244707 (Version 3)
Quarter: 2014Q2

REPORT INFORMATION
  Report Type: Spontaneous
  Country: JP (occurrence: JP)
  Receive Date: 20140618
  Receipt Date: 20140626
  Transmission Date: 20141212
  Serious: Yes (Other)
  Sender: FDA-Public Use
  Company Number: PHHY2014JP069687

PATIENT
  Age: 16 Year
  Sex: Female

DRUGS (5)
  1. NEORAL [Suspect]
     Indication: NEPHROTIC SYNDROME
     Dosage: 160 MG, DAILY
     Route: 048
  2. FUROSEMIDE [Suspect]
     Indication: OEDEMA
     Route: 065
  3. ALBUMIN [Suspect]
     Indication: OEDEMA
     Route: 065
  4. MIZORIBINE [Suspect]
     Indication: NEPHROTIC SYNDROME
     Route: 048
  5. TOLVAPTAN [Concomitant]
     Indication: PERICARDIAL EFFUSION

REACTIONS (4)
  - Nephropathy [Not Recovered/Not Resolved]
  - Focal segmental glomerulosclerosis [Not Recovered/Not Resolved]
  - Oedema [Recovering/Resolving]
  - Drug ineffective [Unknown]
